FAERS Safety Report 4888542-6 (Version None)
Quarter: 2005Q4

REPORT INFORMATION
  Report Type: 
  Country: None (occurrence: None)
  Receive Date: 20051215
  Receipt Date: 20050417
  Transmission Date: 20060501
  Serious: Yes (Other)
  Sender: FDA-Public Use
  Company Number: 2005063319

PATIENT
  Age: 45 Year
  Sex: 0

DRUGS (1)
  1. BEXTRA [Suspect]
     Indication: ILL-DEFINED DISORDER

REACTIONS (2)
  - ATRIAL FIBRILLATION [None]
  - CARDIAC VALVE DISEASE [None]
